FAERS Safety Report 15105692 (Version 1)
Quarter: 2018Q3

REPORT INFORMATION
  Report Type: Other
  Country: DE (occurrence: DE)
  Receive Date: 20180704
  Receipt Date: 20180704
  Transmission Date: 20181010
  Serious: No
  Sender: FDA-Public Use
  Company Number: DE-LUPIN PHARMACEUTICALS INC.-2018-03333

PATIENT
  Sex: Female
  Weight: 134 kg

DRUGS (8)
  1. SIMVASTATIN. [Suspect]
     Active Substance: SIMVASTATIN
     Indication: LIPOPROTEIN (A) INCREASED
     Dosage: 20?40 MG,
     Route: 048
  2. ATORVASTATIN [Suspect]
     Active Substance: ATORVASTATIN
     Indication: CARBON DIOXIDE INCREASED
     Dosage: 5 MG, 3 DAY
     Route: 048
     Dates: start: 201802, end: 201803
  3. SIMVASTATIN. [Suspect]
     Active Substance: SIMVASTATIN
     Indication: CARBON DIOXIDE INCREASED
  4. FLUVASTATIN [Suspect]
     Active Substance: FLUVASTATIN SODIUM
     Indication: CARBON DIOXIDE INCREASED
     Dosage: 20 MG, QD
     Route: 048
  5. FLUVASTATIN [Suspect]
     Active Substance: FLUVASTATIN SODIUM
     Indication: LIPOPROTEIN (A) INCREASED
  6. PRAVASTATIN. [Suspect]
     Active Substance: PRAVASTATIN
     Indication: LIPOPROTEIN (A) INCREASED
  7. PRAVASTATIN. [Suspect]
     Active Substance: PRAVASTATIN
     Indication: CARBON DIOXIDE INCREASED
     Dosage: 20 MG, QD
     Route: 048
  8. ATORVASTATIN [Suspect]
     Active Substance: ATORVASTATIN
     Indication: LIPOPROTEIN (A) INCREASED

REACTIONS (2)
  - Myalgia [Recovered/Resolved]
  - Arthralgia [Recovered/Resolved]
